FAERS Safety Report 17500737 (Version 1)
Quarter: 2020Q1

REPORT INFORMATION
  Report Type: Spontaneous
  Country: DE (occurrence: DE)
  Receive Date: 20200305
  Receipt Date: 20200305
  Transmission Date: 20200409
  Serious: Yes (Other)
  Sender: FDA-Public Use
  Company Number: DE-ALLERGAN-2009836US

PATIENT
  Sex: Male
  Weight: 95 kg

DRUGS (10)
  1. HUMIRA [Suspect]
     Active Substance: ADALIMUMAB
     Indication: COLITIS ULCERATIVE
     Dosage: 80 MG
     Route: 058
  2. HUMIRA [Suspect]
     Active Substance: ADALIMUMAB
     Dosage: 40 MG
     Route: 058
     Dates: end: 201310
  3. HUMIRA [Suspect]
     Active Substance: ADALIMUMAB
     Dosage: 160 MG
     Route: 058
     Dates: start: 201303, end: 2013
  4. MESALAZIN [Concomitant]
     Active Substance: MESALAMINE
     Indication: COLITIS ULCERATIVE
     Dosage: INTERMITTENTLY
  5. PREDNISOLON [Concomitant]
     Active Substance: PREDNISOLONE
     Indication: ADVERSE EVENT
     Dosage: 5-15 MG
     Dates: start: 2009
  6. AZATHIOPRIN [Suspect]
     Active Substance: AZATHIOPRINE
     Indication: COLITIS ULCERATIVE
     Dosage: 2.5 MG/KG OF BODY WEIGHT
     Route: 065
     Dates: start: 201206, end: 201501
  7. INFLIXIMAB [Suspect]
     Active Substance: INFLIXIMAB
     Indication: COLITIS ULCERATIVE
     Dosage: 5 MG/KG OF BODYWEIGHT, ON THE WEEK 0, 2 AND 6
     Route: 042
     Dates: end: 201411
  8. MESALAZINE UNK [Suspect]
     Active Substance: MESALAMINE
     Indication: COLITIS ULCERATIVE
     Dosage: 3 G, QD
     Route: 048
     Dates: start: 2009
  9. AZATHIOPRIN [Suspect]
     Active Substance: AZATHIOPRINE
     Dosage: 1.5 MG/KG OF BODY WEIGHT
     Dates: start: 2011, end: 201206
  10. FERRIC CARBOXYMALTOSE [Concomitant]
     Active Substance: FERRIC CARBOXYMALTOSE
     Indication: MINERAL SUPPLEMENTATION
     Route: 051

REACTIONS (6)
  - Therapeutic product effect decreased [Unknown]
  - Diarrhoea haemorrhagic [Unknown]
  - C-reactive protein increased [Unknown]
  - Colitis [Unknown]
  - Proctitis [Recovered/Resolved]
  - Abdominal pain [Recovered/Resolved]

NARRATIVE: CASE EVENT DATE: 201409
